FAERS Safety Report 8025203-9 (Version None)
Quarter: 2012Q1

REPORT INFORMATION
  Report Type: 
  Country: None (occurrence: None)
  Receive Date: 20120105
  Receipt Date: 20111228
  Transmission Date: 20120608
  Serious: Yes (Life-Threatening, Hospitalization)
  Sender: FDA-Public Use
  Company Number: FR-GLAXOSMITHKLINE-B0771770A

PATIENT
  Sex: Female
  Weight: 46 kg

DRUGS (5)
  1. ACETAMINOPHEN [Suspect]
     Indication: BACK PAIN
     Dosage: 500MG THREE TIMES PER DAY
     Route: 048
  2. MOBIC [Suspect]
     Indication: PAIN
     Route: 048
  3. ANTIHISTAMINIC [Concomitant]
     Indication: RHINITIS ALLERGIC
  4. ZENTEL [Suspect]
     Indication: ABDOMINAL PAIN
     Route: 048
  5. OMEPRAZOLE [Concomitant]
     Dates: start: 20060531

REACTIONS (3)
  - HEPATITIS TOXIC [None]
  - LIVER TRANSPLANT [None]
  - CHOLELITHIASIS [None]
